FAERS Safety Report 5373125-4 (Version None)
Quarter: 2007Q2

REPORT INFORMATION
  Report Type: 
  Country: None (occurrence: None)
  Receive Date: 20070619
  Receipt Date: 20070427
  Transmission Date: 20071010
  Serious: No
  Sender: FDA-Public Use
  Company Number: 2007US001150

PATIENT
  Age: 87 Year
  Sex: Female

DRUGS (3)
  1. VESICARE [Suspect]
     Indication: DRUG USE FOR UNKNOWN INDICATION
     Dosage: 5 MG, ORAL
     Route: 048
     Dates: start: 20060101
  2. CITRUCEL (METHYLCELLULOSE) [Concomitant]
  3. EYE DROPS (TETRYZOLINE HYDROCHLOLRIDE) [Concomitant]

REACTIONS (4)
  - DRUG INEFFECTIVE [None]
  - DRY MOUTH [None]
  - NOCTURIA [None]
  - URINE ANALYSIS ABNORMAL [None]
